FAERS Safety Report 5753941-7 (Version None)
Quarter: 2008Q2

REPORT INFORMATION
  Report Type: 
  Country: None (occurrence: None)
  Receive Date: 20080527
  Receipt Date: 20080527
  Transmission Date: 20081010
  Serious: No
  Sender: FDA-Public Use
  Company Number: None

PATIENT
  Sex: Male
  Weight: 65.7716 kg

DRUGS (4)
  1. LEXAPRO [Suspect]
     Indication: ANXIETY
     Dosage: 20 MG    1X/DAY   PO
     Route: 048
     Dates: start: 20041129, end: 20051001
  2. LEXAPRO [Suspect]
     Indication: DEPRESSION
     Dosage: 20 MG    1X/DAY   PO
     Route: 048
     Dates: start: 20041129, end: 20051001
  3. CELEXA [Suspect]
     Indication: ANXIETY
     Dosage: 40 MG      1X/DAY          PO
     Route: 048
     Dates: start: 20020205, end: 20041229
  4. CELEXA [Suspect]
     Indication: DEPRESSION
     Dosage: 40 MG      1X/DAY          PO
     Route: 048
     Dates: start: 20020205, end: 20041229

REACTIONS (9)
  - BURNING SENSATION [None]
  - DRY MOUTH [None]
  - ILL-DEFINED DISORDER [None]
  - IMPAIRED WORK ABILITY [None]
  - MUSCLE SPASMS [None]
  - MUSCLE TIGHTNESS [None]
  - MUSCULOSKELETAL PAIN [None]
  - NECK PAIN [None]
  - NO THERAPEUTIC RESPONSE [None]
